FAERS Safety Report 10948254 (Version 1)
Quarter: 2015Q1

REPORT INFORMATION
  Report Type: Spontaneous
  Country: US (occurrence: None)
  Receive Date: 20150320
  Receipt Date: 20150320
  Transmission Date: 20150721
  Serious: Yes (Other)
  Sender: FDA-Public Use
  Company Number: US-2015VAL000198

PATIENT
  Sex: Female

DRUGS (10)
  1. LISINOPRIL (LISINOPRIL) [Suspect]
     Active Substance: LISINOPRIL
     Indication: PRODUCT USED FOR UNKNOWN INDICATION
  2. SINGULAIR (MONTELUKAST SODIUM) [Concomitant]
  3. HYDROXYZINE (HYDROXYZINE) [Concomitant]
     Active Substance: HYDROXYZINE HYDROCHLORIDE
  4. ALBUTEROL (SALBUTAMOL) [Concomitant]
     Active Substance: ALBUTEROL
  5. ADVAIR (FLUCITASONE PROPIONATE, SALMETEROL XINAFOATE) [Concomitant]
  6. ZANTAC [Concomitant]
     Active Substance: RANITIDINE HYDROCHLORIDE
  7. SIMBICORT TURBUHALER (BUDESONIDE, FORMOTEROL FUMARATE) [Concomitant]
  8. IMITREX [Concomitant]
     Active Substance: SUMATRIPTAN\SUMATRIPTAN SUCCINATE
  9. METOPROLOL TARTRATE. [Suspect]
     Active Substance: METOPROLOL TARTRATE
     Indication: PRODUCT USED FOR UNKNOWN INDICATION
  10. OXYBUTYN (OXYBUTYNIN HYDROCHLORIDE) [Concomitant]

REACTIONS (2)
  - Hypersensitivity [None]
  - Bronchospasm [None]
